FAERS Safety Report 18190387 (Version 3)
Quarter: 2020Q4

REPORT INFORMATION
  Report Type: Spontaneous
  Country: US (occurrence: US)
  Receive Date: 20200824
  Receipt Date: 20201216
  Transmission Date: 20210113
  Serious: Yes (Disabling, Other)
  Sender: FDA-Public Use
  Company Number: US-LANNETT COMPANY, INC.-US-2020LAN000204

PATIENT
  Age: 55 Year
  Sex: Female

DRUGS (1)
  1. BACLOFEN. [Suspect]
     Active Substance: BACLOFEN
     Indication: MUSCLE SPASMS
     Dosage: 10 MG, TID
     Route: 048
     Dates: start: 20200617, end: 20200625

REACTIONS (11)
  - Device physical property issue [Not Recovered/Not Resolved]
  - Gait inability [Unknown]
  - Dyskinesia [Not Recovered/Not Resolved]
  - Loss of consciousness [Not Recovered/Not Resolved]
  - Fall [Unknown]
  - Adverse drug reaction [Not Recovered/Not Resolved]
  - Muscular weakness [Unknown]
  - Change in sustained attention [Not Recovered/Not Resolved]
  - Muscle twitching [Unknown]
  - Bedridden [Unknown]
  - Loss of personal independence in daily activities [Unknown]

NARRATIVE: CASE EVENT DATE: 202006
